FAERS Safety Report 8132622-9 (Version None)
Quarter: 2012Q1

REPORT INFORMATION
  Report Type: 
  Country: None (occurrence: None)
  Receive Date: 20120213
  Receipt Date: 20120207
  Transmission Date: 20120608
  Serious: Yes (Other)
  Sender: FDA-Public Use
  Company Number: US-GLAXOSMITHKLINE-A0965013A

PATIENT
  Sex: Female

DRUGS (9)
  1. HYDROCODONE [Concomitant]
  2. PROTONIX [Concomitant]
  3. MECLIZINE [Concomitant]
  4. ALPRAZOLAM [Concomitant]
  5. CLONAZEPAM [Concomitant]
  6. NAPROXEN [Concomitant]
  7. DYAZIDE [Concomitant]
  8. LAMOTRIGINE [Suspect]
     Indication: EPILEPSY
     Route: 048
     Dates: start: 20040101
  9. ATENOLOL [Concomitant]

REACTIONS (10)
  - CRYING [None]
  - AFFECTIVE DISORDER [None]
  - RASH [None]
  - SPEECH DISORDER [None]
  - EUPHORIC MOOD [None]
  - GRAND MAL CONVULSION [None]
  - HALLUCINATION, VISUAL [None]
  - SUICIDAL IDEATION [None]
  - FATIGUE [None]
  - SOMNOLENCE [None]
